FAERS Safety Report 7776784-1 (Version None)
Quarter: 2011Q3

REPORT INFORMATION
  Report Type: 
  Country: None (occurrence: None)
  Receive Date: 20110926
  Receipt Date: 20110913
  Transmission Date: 20111222
  Serious: Yes (Hospitalization)
  Sender: FDA-Public Use
  Company Number: DE-JNJFOC-20110907411

PATIENT
  Sex: Male
  Weight: 33 kg

DRUGS (7)
  1. VIANI FORTE [Concomitant]
  2. RIMEXOLONE [Concomitant]
  3. AZATHIOPRINE [Concomitant]
  4. DESLORATADINE [Concomitant]
  5. FLUTICASONE PROPIONATE [Concomitant]
  6. SALMETEROL [Concomitant]
  7. REMICADE [Suspect]
     Indication: CROHN'S DISEASE
     Route: 042
     Dates: start: 20080320, end: 20110722

REACTIONS (1)
  - ENCOPRESIS [None]
